FAERS Safety Report 21029090 (Version 1)
Quarter: 2022Q2

REPORT INFORMATION
  Report Type: Spontaneous
  Country: US (occurrence: US)
  Receive Date: 20220630
  Receipt Date: 20220630
  Transmission Date: 20220721
  Serious: Yes (Other)
  Sender: FDA-Public Use
  Company Number: US-GLAXOSMITHKLINE-USCH2022022146

PATIENT
  Sex: Male

DRUGS (2)
  1. CITRUCEL [Suspect]
     Active Substance: METHYLCELLULOSE (4000 MPA.S)
     Indication: Product used for unknown indication
     Dosage: UNK
  2. CITRUCEL [Suspect]
     Active Substance: METHYLCELLULOSE (4000 MPA.S)
     Indication: Product used for unknown indication
     Dosage: UNK

REACTIONS (4)
  - Atrial fibrillation [Unknown]
  - Insomnia [Unknown]
  - Gait disturbance [Unknown]
  - Dysstasia [Unknown]
